FAERS Safety Report 6696541-7 (Version None)
Quarter: 2010Q2

REPORT INFORMATION
  Report Type: 
  Country: None (occurrence: None)
  Receive Date: 20100426
  Receipt Date: 20100416
  Transmission Date: 20101027
  Serious: Yes (Other)
  Sender: FDA-Public Use
  Company Number: US-JNJFOC-20100405552

PATIENT
  Age: 63 Year
  Sex: Female
  Weight: 52.16 kg

DRUGS (1)
  1. MOTRIN IB [Suspect]
     Indication: BACK PAIN
     Route: 048

REACTIONS (3)
  - HEPATIC LESION [None]
  - MALAISE [None]
  - PRODUCT QUALITY ISSUE [None]
